FAERS Safety Report 20968621 (Version 1)
Quarter: 2022Q2

REPORT INFORMATION
  Report Type: Spontaneous
  Country: US (occurrence: None)
  Receive Date: 20220616
  Receipt Date: 20220616
  Transmission Date: 20220721
  Serious: Yes (unspecified)
  Sender: FDA-Public Use
  Company Number: None

PATIENT
  Age: 67 Year
  Sex: Female
  Weight: 78.75 kg

DRUGS (3)
  1. ALBUTEROL [Suspect]
     Active Substance: ALBUTEROL
     Indication: Chronic obstructive pulmonary disease
     Dosage: FREQUENCY : EVERY 4 HOURS; 2 PUFFS
     Route: 055
     Dates: start: 20220601, end: 20220615
  2. brestri [Concomitant]
  3. PREMARIN [Concomitant]
     Active Substance: ESTROGENS, CONJUGATED

REACTIONS (7)
  - Product substitution issue [None]
  - Rhinorrhoea [None]
  - Headache [None]
  - Dyspnoea [None]
  - Cough [None]
  - Throat irritation [None]
  - Abdominal discomfort [None]

NARRATIVE: CASE EVENT DATE: 20220601
